FAERS Safety Report 15051682 (Version 1)
Quarter: 2018Q3

REPORT INFORMATION
  Report Type: Spontaneous
  Country: US (occurrence: US)
  Receive Date: 20180622
  Receipt Date: 20180622
  Transmission Date: 20181010
  Serious: Yes (Other)
  Sender: FDA-Public Use
  Company Number: US-ANIPHARMA-2018-US-010379

PATIENT
  Age: 71 Year
  Sex: Female
  Weight: 113.4 kg

DRUGS (4)
  1. FASLODEX [Suspect]
     Active Substance: FULVESTRANT
     Dates: start: 2017
  2. ARIMIDEX [Suspect]
     Active Substance: ANASTROZOLE
     Indication: BREAST CANCER
     Route: 048
     Dates: start: 2012, end: 2017
  3. IBRANCE [Suspect]
     Active Substance: PALBOCICLIB
     Dates: start: 2017
  4. TAMOXIFEN [Suspect]
     Active Substance: TAMOXIFEN
     Dates: start: 2017, end: 2017

REACTIONS (6)
  - Drug ineffective [Unknown]
  - Disease progression [None]
  - Alopecia [Unknown]
  - Metastases to spine [Unknown]
  - Madarosis [Unknown]
  - Injection site pruritus [None]

NARRATIVE: CASE EVENT DATE: 2017
